FAERS Safety Report 8009307-2 (Version None)
Quarter: 2011Q4

REPORT INFORMATION
  Report Type: 
  Country: None (occurrence: None)
  Receive Date: 20111227
  Receipt Date: 20111220
  Transmission Date: 20120403
  Serious: Yes (Death, Hospitalization)
  Sender: FDA-Public Use
  Company Number: US-MPIJNJ-2011-06024

PATIENT
  Age: 73 Year
  Sex: Female
  Weight: 61.5 kg

DRUGS (1)
  1. VELCADE [Suspect]
     Indication: MULTIPLE MYELOMA
     Dosage: 2.5 MG, CYCLIC
     Route: 042

REACTIONS (12)
  - DEATH [None]
  - NAUSEA [None]
  - BLOOD CULTURE POSITIVE [None]
  - DIARRHOEA [None]
  - COLITIS [None]
  - ENTEROCOCCAL INFECTION [None]
  - CLOSTRIDIAL INFECTION [None]
  - THROMBOSIS [None]
  - FALL [None]
  - VOMITING [None]
  - IRON DEFICIENCY [None]
  - ASTHENIA [None]
